FAERS Safety Report 5095482-9 (Version None)
Quarter: 2006Q3

REPORT INFORMATION
  Report Type: 
  Country: None (occurrence: None)
  Receive Date: 20060901
  Receipt Date: 20060901
  Transmission Date: 20061208
  Serious: No
  Sender: FDA-Public Use
  Company Number: None

PATIENT
  Sex: Female
  Weight: 31.8 kg

DRUGS (1)
  1. LUPRON [Suspect]
     Indication: PRECOCIOUS PUBERTY
     Dosage: 11.25 MG MONTHLY IM
     Route: 030
     Dates: start: 20060814

REACTIONS (2)
  - INJECTION SITE ERYTHEMA [None]
  - INJECTION SITE SWELLING [None]
